FAERS Safety Report 16718031 (Version 1)
Quarter: 2019Q3

REPORT INFORMATION
  Report Type: Spontaneous
  Country: ZA (occurrence: ZA)
  Receive Date: 20190819
  Receipt Date: 20190819
  Transmission Date: 20191005
  Serious: Yes (Death, Other)
  Sender: FDA-Public Use
  Company Number: PHHY2019ZA191980

PATIENT
  Sex: Male

DRUGS (2)
  1. ENTRESTO [Suspect]
     Active Substance: SACUBITRIL\VALSARTAN
     Indication: GLOMERULAR FILTRATION RATE
     Dosage: UNK
     Route: 065
  2. XARELTO [Concomitant]
     Active Substance: RIVAROXABAN
     Indication: PRODUCT USED FOR UNKNOWN INDICATION
     Dosage: UNK
     Route: 065

REACTIONS (7)
  - Renal impairment [Unknown]
  - Glomerular filtration rate decreased [Unknown]
  - Death [Fatal]
  - Contraindicated product administered [Unknown]
  - Off label use [Unknown]
  - Product use in unapproved indication [Unknown]
  - Pulmonary embolism [Unknown]
